FAERS Safety Report 6935692-6 (Version None)
Quarter: 2010Q3

REPORT INFORMATION
  Report Type: 
  Country: None (occurrence: None)
  Receive Date: 20100823
  Receipt Date: 20100813
  Transmission Date: 20110219
  Serious: Yes (Other)
  Sender: FDA-Public Use
  Company Number: US-JNJFOC-20100806204

PATIENT
  Sex: Male
  Weight: 90.72 kg

DRUGS (2)
  1. TRAMADOL [Suspect]
     Indication: PAIN
     Route: 048
  2. VICODIN [Concomitant]
     Indication: PAIN
     Dosage: 4 A DAY/10/500 MG
     Route: 048

REACTIONS (5)
  - BLOOD PRESSURE FLUCTUATION [None]
  - CHEST PAIN [None]
  - DIZZINESS [None]
  - DYSPNOEA [None]
  - PALPITATIONS [None]
